FAERS Safety Report 17973533 (Version 1)
Quarter: 2020Q3

REPORT INFORMATION
  Report Type: Spontaneous
  Country: ES (occurrence: ES)
  Receive Date: 20200702
  Receipt Date: 20200702
  Transmission Date: 20201103
  Serious: Yes (Other)
  Sender: FDA-Public Use
  Company Number: ES-ELI_LILLY_AND_COMPANY-ES202005006135

PATIENT
  Age: 62 Year
  Sex: Male

DRUGS (4)
  1. VINORELBINE [Suspect]
     Active Substance: VINORELBINE TARTRATE
     Indication: SQUAMOUS CELL CARCINOMA OF LUNG
     Dosage: UNK, UNKNOWN
     Route: 065
     Dates: start: 201704
  2. CARBOPLATIN. [Suspect]
     Active Substance: CARBOPLATIN
     Indication: SQUAMOUS CELL CARCINOMA OF LUNG
     Dosage: UNK, UNKNOWN
     Route: 065
  3. GEMCITABINE HYDROCHLORIDE. [Suspect]
     Active Substance: GEMCITABINE HYDROCHLORIDE
     Indication: SQUAMOUS CELL CARCINOMA OF LUNG
     Dosage: UNK, UNKNOWN
     Route: 065
     Dates: start: 201704
  4. PACLITAXEL. [Suspect]
     Active Substance: PACLITAXEL
     Indication: SQUAMOUS CELL CARCINOMA OF LUNG
     Dosage: UNK, UNKNOWN
     Route: 065

REACTIONS (4)
  - Neutropenia [Unknown]
  - Pyrexia [Unknown]
  - Obstructive pancreatitis [Unknown]
  - Anaemia [Unknown]
